FAERS Safety Report 9116078 (Version 1)
Quarter: 2013Q1

REPORT INFORMATION
  Report Type: Spontaneous
  Country: US (occurrence: US)
  Receive Date: 20130225
  Receipt Date: 20130225
  Transmission Date: 20140127
  Serious: No
  Sender: FDA-Public Use
  Company Number: US-ENDO PHARMACEUTICALS INC.-FORT20120259

PATIENT
  Sex: Male
  Weight: 69.92 kg

DRUGS (9)
  1. FORTESTA [Suspect]
     Indication: PRODUCT USED FOR UNKNOWN INDICATION
     Dosage: UNK
     Route: 061
  2. ADVAIR [Concomitant]
  3. ALPRAZOLAM IR TABLETS [Concomitant]
  4. ATENOLOL [Concomitant]
  5. SPIRIVA [Concomitant]
  6. NIACIN [Concomitant]
  7. NEXIUM [Concomitant]
  8. GABAPENTIN [Concomitant]
  9. CARISOPRODOL TABLETS 350MG [Concomitant]

REACTIONS (2)
  - Application site exfoliation [Recovered/Resolved]
  - Sunburn [Recovered/Resolved]
